FAERS Safety Report 8197697-X (Version None)
Quarter: 2012Q1

REPORT INFORMATION
  Report Type: 
  Country: None (occurrence: None)
  Receive Date: 20120309
  Receipt Date: 20120222
  Transmission Date: 20120608
  Serious: Yes (Hospitalization, Other)
  Sender: FDA-Public Use
  Company Number: CA-AMGEN-CANCT2012011899

PATIENT
  Age: 87 Year
  Sex: Male

DRUGS (1)
  1. XGEVA [Suspect]
     Indication: PROSTATE CANCER
     Dosage: 1 ML, Q4WK
     Route: 058
     Dates: start: 20110124

REACTIONS (2)
  - DIARRHOEA [None]
  - ABDOMINAL PAIN [None]
